FAERS Safety Report 6986809-9 (Version None)
Quarter: 2010Q3

REPORT INFORMATION
  Report Type: 
  Country: None (occurrence: None)
  Receive Date: 20100915
  Receipt Date: 20090805
  Transmission Date: 20110219
  Serious: No
  Sender: FDA-Public Use
  Company Number: US-WYE-H10476509

PATIENT
  Sex: Female

DRUGS (3)
  1. PRISTIQ [Suspect]
     Indication: DEPRESSION
     Route: 048
     Dates: start: 20090708
  2. WELLBUTRIN [Suspect]
     Dosage: TAPERING OFF
     Route: 048
     Dates: start: 20090708, end: 20090721
  3. CLONAZEPAM [Concomitant]

REACTIONS (1)
  - PRURITUS [None]
